FAERS Safety Report 8823091 (Version 3)
Quarter: 2012Q4

REPORT INFORMATION
  Report Type: 
  Country: US (occurrence: US)
  Receive Date: 20121003
  Receipt Date: 20121115
  Transmission Date: 20130627
  Serious: Yes (Hospitalization, Other)
  Sender: FDA-Public Use
  Company Number: US-ASTRAZENECA-2012SE69758

PATIENT
  Age: 77 Year
  Sex: Female

DRUGS (4)
  1. NEXIUM [Suspect]
     Dosage: BID frequency
     Route: 048
  2. CRESTOR [Suspect]
     Route: 048
  3. PROTONIX [Concomitant]
  4. ZANTAC [Concomitant]

REACTIONS (8)
  - Oesophagitis [Unknown]
  - Malaise [Unknown]
  - Vomiting [Unknown]
  - Gait disturbance [Unknown]
  - Gastric disorder [Unknown]
  - Malaise [Unknown]
  - Nausea [Unknown]
  - Drug dose omission [Unknown]
